FAERS Safety Report 4959528-8 (Version None)
Quarter: 2006Q1

REPORT INFORMATION
  Report Type: 
  Country: None (occurrence: None)
  Receive Date: 20060331
  Receipt Date: 20060323
  Transmission Date: 20060701
  Serious: Yes (Other)
  Sender: FDA-Public Use
  Company Number: US-GLAXOSMITHKLINE-A0599389A

PATIENT
  Age: 67 Year
  Sex: Female

DRUGS (2)
  1. ADVAIR DISKUS 100/50 [Suspect]
     Indication: DRUG USE FOR UNKNOWN INDICATION
     Route: 048
     Dates: start: 20040101
  2. INFLUENZA VACCINE [Suspect]
     Route: 065
     Dates: start: 20041210, end: 20041210

REACTIONS (6)
  - ASTHMA [None]
  - DRUG INTERACTION [None]
  - MALAISE [None]
  - MULTIPLE ALLERGIES [None]
  - RESPIRATORY DISORDER [None]
  - SINUSITIS [None]
